FAERS Safety Report 8473601-1 (Version None)
Quarter: 2012Q2

REPORT INFORMATION
  Report Type: 
  Country: None (occurrence: None)
  Receive Date: 20120628
  Receipt Date: 20110804
  Transmission Date: 20120825
  Serious: Yes (Other)
  Sender: FDA-Public Use
  Company Number: US-MYLANLABS-2011S1013862

PATIENT
  Age: 64 Year
  Sex: Female
  Weight: 71.67 kg

DRUGS (5)
  1. CLOZAPINE [Suspect]
     Indication: SCHIZOPHRENIA
     Route: 048
     Dates: start: 20050901
  2. CLOZAPINE [Suspect]
     Route: 048
     Dates: start: 20050901
  3. SERTRALINE HYDROCHLORIDE [Concomitant]
     Route: 048
  4. MEMANTINE HCL [Concomitant]
     Route: 048
  5. DIVALPROEX SODIUM [Concomitant]
     Route: 048

REACTIONS (1)
  - THROMBOCYTOPENIA [None]
